FAERS Safety Report 4469879-1 (Version None)
Quarter: 2004Q4

REPORT INFORMATION
  Report Type: 
  Country: None (occurrence: None)
  Receive Date: 20041005
  Receipt Date: 20040928
  Transmission Date: 20050328
  Serious: Yes (Other)
  Sender: FDA-Public Use
  Company Number: 2004235655US

PATIENT
  Sex: Female

DRUGS (3)
  1. PROVERA [Suspect]
     Dates: start: 19840101, end: 19980101
  2. PREMARIN [Suspect]
     Dates: start: 19840101, end: 19980101
  3. PREMPRO [Suspect]
     Dates: start: 19840101, end: 19890101

REACTIONS (2)
  - MYOCARDIAL INFARCTION [None]
  - PULMONARY EMBOLISM [None]
